FAERS Safety Report 13612803 (Version 1)
Quarter: 2017Q2

REPORT INFORMATION
  Report Type: Spontaneous
  Country: US (occurrence: US)
  Receive Date: 20170605
  Receipt Date: 20170605
  Transmission Date: 20170830
  Serious: No
  Sender: FDA-Public Use
  Company Number: US-ALLERGAN-1715819US

PATIENT
  Sex: Female
  Weight: 63.49 kg

DRUGS (3)
  1. KYBELLA [Suspect]
     Active Substance: DEOXYCHOLIC ACID
     Dosage: UNK, SINGLE
     Route: 058
     Dates: start: 20170209, end: 20170209
  2. KYBELLA [Suspect]
     Active Substance: DEOXYCHOLIC ACID
     Dosage: UNK
     Route: 058
     Dates: start: 20161229, end: 20161229
  3. KYBELLA [Suspect]
     Active Substance: DEOXYCHOLIC ACID
     Indication: FAT TISSUE INCREASED
     Dosage: UNK, SINGLE
     Route: 058
     Dates: start: 20161229, end: 20161229

REACTIONS (1)
  - Drug ineffective [Unknown]
